FAERS Safety Report 7709407-8 (Version None)
Quarter: 2011Q3

REPORT INFORMATION
  Report Type: 
  Country: None (occurrence: None)
  Receive Date: 20110819
  Receipt Date: 20110808
  Transmission Date: 20111222
  Serious: Yes (Death, Hospitalization)
  Sender: FDA-Public Use
  Company Number: 2008-02137

PATIENT
  Age: 69 Year
  Sex: Female
  Weight: 35 kg

DRUGS (12)
  1. PARIET (RABEPROAZOLE SODIUM) [Concomitant]
  2. AMITRIPTYLINE HCL [Concomitant]
  3. MARZULENE S (LEVOGLUTAMIDE, SODIUM GUALENATE) [Concomitant]
  4. DEPAKENE [Concomitant]
  5. MIYA-BM /JPN/ (CLOSTRIDIUM BUTYRICUM) [Concomitant]
  6. CLARITHROMYCIN [Concomitant]
  7. MUCOSTA (REBAMIPIDE) [Concomitant]
  8. VELCADE [Suspect]
     Indication: MULTIPLE MYELOMA
     Dosage: 1.5 MG, INTRAVENOUS ; 1.2 MG, INTRAVENOUS
     Route: 042
     Dates: start: 20080530, end: 20080602
  9. VELCADE [Suspect]
     Indication: MULTIPLE MYELOMA
     Dosage: 1.5 MG, INTRAVENOUS ; 1.2 MG, INTRAVENOUS
     Route: 042
     Dates: start: 20080606, end: 20080606
  10. DEXAMETHASONE [Concomitant]
  11. ALENDRONATE SODIUM [Concomitant]
  12. MAGNESIUM OXIDE (MAGNESIUM OXIDE) [Concomitant]

REACTIONS (8)
  - CARDIO-RESPIRATORY ARREST [None]
  - SEPTIC SHOCK [None]
  - HYPOCALCAEMIA [None]
  - ILEUS PARALYTIC [None]
  - HYPOALBUMINAEMIA [None]
  - DEPRESSED LEVEL OF CONSCIOUSNESS [None]
  - PLATELET COUNT DECREASED [None]
  - HYPONATRAEMIA [None]
